FAERS Safety Report 7349633-3 (Version None)
Quarter: 2011Q1

REPORT INFORMATION
  Report Type: 
  Country: None (occurrence: None)
  Receive Date: 20110314
  Receipt Date: 20100329
  Transmission Date: 20110831
  Serious: No
  Sender: FDA-Public Use
  Company Number: A0853127A

PATIENT
  Age: 24 Year
  Sex: Female

DRUGS (2)
  1. AUGMENTIN '125' [Suspect]
     Indication: SINUSITIS
     Dosage: 875MG TWICE PER DAY
     Dates: start: 20100320, end: 20100327
  2. NO CONCURRENT MEDICATIONS [Concomitant]

REACTIONS (1)
  - ARTHRALGIA [None]
